FAERS Safety Report 7780152-6 (Version None)
Quarter: 2011Q3

REPORT INFORMATION
  Report Type: 
  Country: None (occurrence: None)
  Receive Date: 20110927
  Receipt Date: 20110516
  Transmission Date: 20111222
  Serious: No
  Sender: FDA-Public Use
  Company Number: US-ASTRAZENECA-2011SE29498

PATIENT
  Age: 48 Year
  Sex: Female
  Weight: 61.2 kg

DRUGS (4)
  1. HUMALOG [Concomitant]
  2. TRAMADOL HCL [Concomitant]
  3. SEROQUEL [Suspect]
     Indication: BIPOLAR DISORDER
     Route: 048
  4. LANTUS [Concomitant]

REACTIONS (3)
  - DRUG DOSE OMISSION [None]
  - DEPRESSION [None]
  - CROHN'S DISEASE [None]
